FAERS Safety Report 24140524 (Version 5)
Quarter: 2024Q3

REPORT INFORMATION
  Report Type: Report from Study
  Country: CA (occurrence: CA)
  Receive Date: 20240726
  Receipt Date: 20240902
  Transmission Date: 20241016
  Serious: Yes (Other)
  Sender: SANDOZ
  Company Number: CA-002147023-NVSC2022CA132128

PATIENT
  Age: 35 Year
  Sex: Female

DRUGS (4)
  1. HYRIMOZ [Suspect]
     Active Substance: ADALIMUMAB-ADAZ
     Dosage: 40 MG;EVERY TWO WEEKS
     Route: 058
     Dates: start: 20240826
  2. HYRIMOZ [Suspect]
     Active Substance: ADALIMUMAB-ADAZ
     Indication: Crohn^s disease
     Dosage: 40 MG Q. 2 WEEKS;EVERY TWO WEEKS
     Route: 058
     Dates: start: 20220521
  3. LINACLOTIDE [Concomitant]
     Active Substance: LINACLOTIDE
     Indication: Product used for unknown indication
     Dosage: UNK
     Route: 065
  4. HUMIRA [Concomitant]
     Active Substance: ADALIMUMAB
     Indication: Product used for unknown indication
     Dosage: UNK
     Route: 065

REACTIONS (36)
  - Uveitis [Unknown]
  - Delirium [Unknown]
  - Stress [Unknown]
  - Emotional disorder [Unknown]
  - Constipation [Unknown]
  - Dysuria [Unknown]
  - Skin burning sensation [Unknown]
  - Emotional distress [Unknown]
  - Fluid retention [Unknown]
  - Attention deficit hyperactivity disorder [Unknown]
  - Ligament sprain [Unknown]
  - Limb injury [Unknown]
  - Epistaxis [Unknown]
  - General physical health deterioration [Unknown]
  - Phobia [Unknown]
  - Feeling abnormal [Unknown]
  - Disorganised speech [Unknown]
  - Logorrhoea [Unknown]
  - Incoherent [Unknown]
  - Fear of injection [Unknown]
  - Impaired quality of life [Unknown]
  - Mental disorder [Unknown]
  - Diarrhoea [Unknown]
  - Oral candidiasis [Unknown]
  - Fatigue [Unknown]
  - Malaise [Unknown]
  - Impaired healing [Unknown]
  - Dyspepsia [Unknown]
  - Abdominal pain [Not Recovered/Not Resolved]
  - Peripheral swelling [Unknown]
  - Alopecia [Unknown]
  - Incorrect dose administered [Unknown]
  - Drug dose omission by device [Unknown]
  - Inappropriate schedule of product administration [Unknown]
  - Intentional dose omission [Unknown]
  - Treatment noncompliance [Unknown]

NARRATIVE: CASE EVENT DATE: 20220601
